FAERS Safety Report 5905798-9 (Version None)
Quarter: 2008Q4

REPORT INFORMATION
  Report Type: 
  Country: None (occurrence: None)
  Receive Date: 20081002
  Receipt Date: 20080930
  Transmission Date: 20090506
  Serious: Yes (Death, Hospitalization)
  Sender: FDA-Public Use
  Company Number: A0750324A

PATIENT
  Age: 97 Year
  Sex: Male
  Weight: 68 kg

DRUGS (4)
  1. SERETIDE [Suspect]
     Indication: CHRONIC OBSTRUCTIVE PULMONARY DISEASE
     Route: 055
     Dates: start: 20080804, end: 20080819
  2. SUSTRATE [Concomitant]
     Dates: start: 20060101, end: 20080917
  3. PANTOPRAZOLE SODIUM [Concomitant]
     Dosage: 20MG TWICE PER DAY
     Dates: start: 20060101, end: 20080917
  4. SYMBICORT [Concomitant]

REACTIONS (2)
  - MULTI-ORGAN FAILURE [None]
  - PULMONARY EMBOLISM [None]
